FAERS Safety Report 15644269 (Version 1)
Quarter: 2018Q4

REPORT INFORMATION
  Report Type: Report from Study
  Country: CA (occurrence: CA)
  Receive Date: 20181121
  Receipt Date: 20181121
  Transmission Date: 20190205
  Serious: Yes (Death, Other)
  Sender: FDA-Public Use
  Company Number: CA-PFIZER INC-2018475971

PATIENT
  Age: 75 Year
  Sex: Male
  Weight: 68 kg

DRUGS (13)
  1. ROSUVASTATIN. [Concomitant]
     Active Substance: ROSUVASTATIN
     Dosage: 20 MG, UNK
  2. ACETYLSALICYLIC ACID [Concomitant]
     Active Substance: ASPIRIN
     Dosage: 81 MG, UNK
  3. ALLOPURINOL. [Concomitant]
     Active Substance: ALLOPURINOL
     Dosage: 200 MG, UNK
  4. BISOPROLOL [Concomitant]
     Active Substance: BISOPROLOL
     Dosage: 5 MG, UNK
  5. RABEPRAZOLE [Concomitant]
     Active Substance: RABEPRAZOLE
     Dosage: 10 MG, UNK
  6. ESBRIET [Suspect]
     Active Substance: PIRFENIDONE
     Indication: IDIOPATHIC PULMONARY FIBROSIS
     Dosage: 267 MG, 3X/DAY
     Route: 048
  7. ESBRIET [Suspect]
     Active Substance: PIRFENIDONE
     Dosage: UNK
  8. OXYGEN. [Concomitant]
     Active Substance: OXYGEN
     Dosage: UNK
     Route: 065
  9. ESBRIET [Suspect]
     Active Substance: PIRFENIDONE
     Dosage: 534 MG, 3X/DAY
     Route: 048
  10. MORPHINE SULFATE. [Suspect]
     Active Substance: MORPHINE SULFATE
     Indication: COUGH
     Dosage: 1 MG, 4X/DAY
  11. ESBRIET [Suspect]
     Active Substance: PIRFENIDONE
     Dosage: 801 MG, 3X/DAY
     Route: 048
  12. ESBRIET [Suspect]
     Active Substance: PIRFENIDONE
     Dosage: UNK
     Route: 048
  13. METFORMIN [Concomitant]
     Active Substance: METFORMIN HYDROCHLORIDE
     Dosage: 500 MG, UNK

REACTIONS (13)
  - Dyspnoea [Fatal]
  - Frustration tolerance decreased [Fatal]
  - Gait disturbance [Fatal]
  - Pulmonary function test abnormal [Fatal]
  - Cough [Fatal]
  - Fatigue [Fatal]
  - Nausea [Fatal]
  - Decreased appetite [Fatal]
  - Tooth infection [Fatal]
  - Death [Fatal]
  - Constipation [Fatal]
  - Asthenia [Fatal]
  - Malaise [Fatal]
